FAERS Safety Report 25368257 (Version 1)
Quarter: 2025Q2

REPORT INFORMATION
  Report Type: Spontaneous
  Country: US (occurrence: None)
  Receive Date: 20250527
  Receipt Date: 20250527
  Transmission Date: 20250716
  Serious: Yes (Life-Threatening, Hospitalization, Disabling)
  Sender: FDA-CTU
  Company Number: None

PATIENT
  Age: 17 Year
  Weight: 63 kg

DRUGS (8)
  1. FLUOXETINE [Suspect]
     Active Substance: FLUOXETINE HYDROCHLORIDE
     Indication: Anxiety
  2. LEXAPRO [Suspect]
     Active Substance: ESCITALOPRAM OXALATE
  3. YAZ [Suspect]
     Active Substance: DROSPIRENONE\ETHINYL ESTRADIOL
  4. ATIVAN [Concomitant]
     Active Substance: LORAZEPAM
  5. ZINC [Concomitant]
     Active Substance: ZINC
  6. DIETARY SUPPLEMENT [Concomitant]
     Active Substance: DIETARY SUPPLEMENT
  7. MAGNESIUM [Concomitant]
     Active Substance: MAGNESIUM
  8. OMEGA 3 [Concomitant]
     Active Substance: CAPSAICIN

REACTIONS (14)
  - Anxiety [None]
  - Delusion [None]
  - Alopecia [None]
  - Panic attack [None]
  - Depression [None]
  - Catatonia [None]
  - Hypophagia [None]
  - Insomnia [None]
  - Seizure [None]
  - Symptom masked [None]
  - Impaired work ability [None]
  - Sleep terror [None]
  - Hepato-lenticular degeneration [None]
  - Toxicity to various agents [None]

NARRATIVE: CASE EVENT DATE: 20250103
